FAERS Safety Report 12650276 (Version 1)
Quarter: 2016Q3

REPORT INFORMATION
  Report Type: Spontaneous
  Country: US (occurrence: PR)
  Receive Date: 20160813
  Receipt Date: 20160813
  Transmission Date: 20161109
  Serious: No
  Sender: FDA-Public Use
  Company Number: PR-WARNER CHILCOTT, LLC-1056288

PATIENT
  Age: 51 Year
  Sex: Male

DRUGS (2)
  1. ASACOL HD [Suspect]
     Active Substance: MESALAMINE
     Indication: COLITIS ULCERATIVE
     Route: 048
     Dates: start: 201601
  2. CANASA [Concomitant]
     Active Substance: MESALAMINE

REACTIONS (2)
  - Drug ineffective [Not Recovered/Not Resolved]
  - Medication residue present [Not Recovered/Not Resolved]

NARRATIVE: CASE EVENT DATE: 201601
